FAERS Safety Report 5001940-5 (Version None)
Quarter: 2006Q2

REPORT INFORMATION
  Report Type: 
  Country: None (occurrence: None)
  Receive Date: 20060515
  Receipt Date: 20051005
  Transmission Date: 20061013
  Serious: Yes (Hospitalization)
  Sender: FDA-Public Use
  Company Number: US-MERCK-0510USA03843

PATIENT
  Age: 42 Year
  Sex: Female
  Weight: 94 kg

DRUGS (1)
  1. VIOXX [Suspect]
     Route: 048
     Dates: start: 20001109, end: 20031129

REACTIONS (37)
  - ABDOMINAL PAIN [None]
  - ANGINA PECTORIS [None]
  - ARTHRALGIA [None]
  - ASTHENIA [None]
  - BACK INJURY [None]
  - BACK PAIN [None]
  - CARDIOVASCULAR DISORDER [None]
  - CHEST PAIN [None]
  - CHOLECYSTITIS ACUTE [None]
  - CHOLELITHIASIS [None]
  - CONSTIPATION [None]
  - DEPRESSION [None]
  - DIABETES MELLITUS NON-INSULIN-DEPENDENT [None]
  - DIARRHOEA [None]
  - GASTROOESOPHAGEAL REFLUX DISEASE [None]
  - GROIN PAIN [None]
  - HEADACHE [None]
  - HYPERCHOLESTEROLAEMIA [None]
  - HYPERGLYCAEMIA [None]
  - HYPERTENSION [None]
  - INTERVERTEBRAL DISC PROTRUSION [None]
  - LUMBAR RADICULOPATHY [None]
  - MICTURITION URGENCY [None]
  - MUSCLE SPASMS [None]
  - NECK PAIN [None]
  - NEURALGIA [None]
  - NEUROPATHY [None]
  - OEDEMA PERIPHERAL [None]
  - OTITIS MEDIA [None]
  - OVERDOSE [None]
  - PAIN [None]
  - PHARYNGITIS [None]
  - RADICULOPATHY [None]
  - SACROILIITIS [None]
  - UPPER RESPIRATORY TRACT INFECTION [None]
  - URINARY INCONTINENCE [None]
  - VOMITING [None]
